FAERS Safety Report 16320761 (Version 1)
Quarter: 2019Q2

REPORT INFORMATION
  Report Type: Spontaneous
  Country: US (occurrence: US)
  Receive Date: 20190516
  Receipt Date: 20190516
  Transmission Date: 20190711
  Serious: No
  Sender: FDA-Public Use
  Company Number: US-JNJFOC-20190438851

PATIENT
  Sex: Female

DRUGS (2)
  1. WOMENS ROGAINE [Suspect]
     Active Substance: MINOXIDIL
     Route: 061
  2. WOMENS ROGAINE [Suspect]
     Active Substance: MINOXIDIL
     Indication: ALOPECIA
     Dosage: MORE THAN 1 ML. JUST SQUIRTED IT ALL OVER HER HEAD.
     Route: 061
     Dates: start: 201903

REACTIONS (3)
  - Alopecia [Not Recovered/Not Resolved]
  - Overdose [Unknown]
  - Wrong technique in product usage process [Unknown]

NARRATIVE: CASE EVENT DATE: 201903
